FAERS Safety Report 10217885 (Version 3)
Quarter: 2014Q2

REPORT INFORMATION
  Report Type: Spontaneous
  Country: AR (occurrence: AR)
  Receive Date: 20140605
  Receipt Date: 20140616
  Transmission Date: 20141212
  Serious: Yes (Hospitalization)
  Sender: FDA-Public Use
  Company Number: AR-ROCHE-1411675

PATIENT
  Age: 57 Year
  Sex: Female

DRUGS (1)
  1. XOLAIR [Suspect]
     Indication: ASTHMA
     Dosage: TOTAL DOSE OF 20 UNITS
     Route: 058
     Dates: start: 2013, end: 20140520

REACTIONS (2)
  - Asthmatic crisis [Recovered/Resolved]
  - Bronchitis [Recovering/Resolving]
